FAERS Safety Report 8401681-8 (Version None)
Quarter: 2012Q2

REPORT INFORMATION
  Report Type: 
  Country: None (occurrence: None)
  Receive Date: 20120601
  Receipt Date: 20120530
  Transmission Date: 20120825
  Serious: Yes (Other)
  Sender: FDA-Public Use
  Company Number: GB-ASTELLAS-2012EU003880

PATIENT
  Age: 80 Year
  Sex: Female
  Weight: 66 kg

DRUGS (6)
  1. VESICARE [Suspect]
     Indication: BLADDER IRRITATION
     Dosage: 5 MG, UID/QD
     Route: 048
     Dates: start: 20120224, end: 20120514
  2. LANSOPRAZOLE [Concomitant]
     Dosage: 30 MG, UID/QD
     Route: 048
  3. SINEMET [Concomitant]
     Dosage: 1 DF, QID
     Route: 065
  4. ACETAMINOPHEN [Concomitant]
     Dosage: UNK
     Route: 065
  5. NIFEDIPINE [Concomitant]
     Dosage: UNK
     Route: 065
  6. ALBUTEROL [Concomitant]
     Dosage: UNK
     Route: 055

REACTIONS (2)
  - ABDOMINAL DISTENSION [None]
  - FLUID RETENTION [None]
